FAERS Safety Report 14176941 (Version 1)
Quarter: 2017Q4

REPORT INFORMATION
  Report Type: Spontaneous
  Country: GB (occurrence: GB)
  Receive Date: 20171110
  Receipt Date: 20171110
  Transmission Date: 20180321
  Serious: Yes (Other)
  Sender: FDA-Public Use
  Company Number: GB-CONCORDIA PHARMACEUTICALS INC.-GSH201602-000662

PATIENT
  Age: 71 Year
  Sex: Female
  Weight: 88.9 kg

DRUGS (9)
  1. VITAMIN D3 [Concomitant]
     Active Substance: CHOLECALCIFEROL
  2. KRILL OIL [Concomitant]
     Active Substance: DIETARY SUPPLEMENT
  3. BISOPROLOL FUMARATE. [Suspect]
     Active Substance: BISOPROLOL FUMARATE
     Indication: ATRIAL FIBRILLATION
     Route: 048
  4. NATURE-THROID [Concomitant]
     Active Substance: THYROID, PORCINE
  5. PREDNISOLONE. [Suspect]
     Active Substance: PREDNISOLONE
     Indication: ANALGESIC THERAPY
     Route: 048
     Dates: start: 20151221
  6. MULTIVITAMIN [Concomitant]
     Active Substance: VITAMINS
     Dosage: VIRIDIAN 65+
  7. BISOPROLOL FUMARATE. [Suspect]
     Active Substance: BISOPROLOL FUMARATE
     Indication: ATRIAL FIBRILLATION
     Route: 048
     Dates: start: 20160126, end: 20160131
  8. MAGNESIUM [Concomitant]
     Active Substance: MAGNESIUM
     Dosage: HOLLAND AND BARRETT
  9. VITAMIN B12 [Concomitant]
     Active Substance: CYANOCOBALAMIN

REACTIONS (1)
  - Muscle spasms [Recovered/Resolved]
